FAERS Safety Report 10552315 (Version 1)
Quarter: 2014Q4

REPORT INFORMATION
  Report Type: Spontaneous
  Country: US (occurrence: None)
  Receive Date: 20141028
  Receipt Date: 20141028
  Transmission Date: 20150529
  Serious: Yes (Hospitalization)
  Sender: FDA-Public Use
  Company Number: None

PATIENT
  Age: 61 Year
  Sex: Male
  Weight: 135.5 kg

DRUGS (1)
  1. PREGABALIN. [Suspect]
     Active Substance: PREGABALIN
     Indication: PAIN
     Route: 048
     Dates: start: 20140814, end: 20140901

REACTIONS (5)
  - Fall [None]
  - Muscle contractions involuntary [None]
  - Muscle spasms [None]
  - Treatment noncompliance [None]
  - Tremor [None]

NARRATIVE: CASE EVENT DATE: 20140920
